FAERS Safety Report 7773111-0 (Version None)
Quarter: 2011Q3

REPORT INFORMATION
  Report Type: 
  Country: None (occurrence: None)
  Receive Date: 20110922
  Receipt Date: 20110606
  Transmission Date: 20111222
  Serious: Yes (Hospitalization, Other)
  Sender: FDA-Public Use
  Company Number: US-ASTRAZENECA-2011SE17766

PATIENT
  Age: 22843 Day
  Sex: Female

DRUGS (11)
  1. SEROQUEL [Suspect]
     Route: 048
     Dates: start: 20041101, end: 20050601
  2. SYNTHROID [Concomitant]
     Dates: start: 20041123
  3. LAMICTAL [Concomitant]
     Dosage: 25 MG
     Dates: start: 20050315
  4. RISPERDAL [Concomitant]
     Dates: start: 20041123
  5. COGENTIN [Concomitant]
     Dates: start: 20050627
  6. ASPIRIN [Concomitant]
     Dates: start: 20041123
  7. ATIVAN [Concomitant]
     Dosage: 0.5 MG BID PRN
     Dates: start: 20041123
  8. ZOLOFT [Concomitant]
     Dates: start: 20041207
  9. ALLOPURINOL [Concomitant]
     Dates: start: 20041123
  10. VITAMIN B-12 [Concomitant]
     Dosage: 1000 MCG IM Q MONTH
     Dates: start: 20041123
  11. SEROQUEL [Suspect]
     Route: 048
     Dates: start: 20050315, end: 20050829

REACTIONS (6)
  - TARDIVE DYSKINESIA [None]
  - MENTAL STATUS CHANGES [None]
  - DEHYDRATION [None]
  - WEIGHT DECREASED [None]
  - BRONCHITIS [None]
  - PROTRUSION TONGUE [None]
